FAERS Safety Report 9567768 (Version 1)
Quarter: 2013Q3

REPORT INFORMATION
  Report Type: Spontaneous
  Country: US (occurrence: US)
  Receive Date: 20130930
  Receipt Date: 20130930
  Transmission Date: 20140515
  Serious: Yes (Other)
  Sender: FDA-Public Use
  Company Number: US-AMGEN-USASP2013044470

PATIENT
  Age: 57 Year
  Sex: Female
  Weight: 89.8 kg

DRUGS (15)
  1. ENBREL [Suspect]
     Indication: PRODUCT USED FOR UNKNOWN INDICATION
     Dosage: 50 MG, QWK
     Route: 058
     Dates: start: 2012
  2. GABAPENTIN [Concomitant]
     Dosage: 400 MG, UNK
  3. TRAMADOL HCL [Concomitant]
     Dosage: 50 MG, UNK
  4. PREDNISONE [Concomitant]
     Dosage: 20 MG, UNK
  5. CRESTOR [Concomitant]
     Dosage: 20 MG, UNK
  6. NAPROXEN [Concomitant]
     Dosage: 375 MG, UNK
  7. PANTOPRAZOLE [Concomitant]
     Dosage: 20 MG, UNK
  8. HYDROXYZINE HCL [Concomitant]
     Dosage: 25 MG/ML, UNK
  9. FOLIC ACID [Concomitant]
     Dosage: 20 MG, UNK
  10. PRAMIPEXOLE [Concomitant]
     Dosage: 0.125 MG, UNK
  11. METHOTREXATE [Concomitant]
     Dosage: 2.5 MG, UNK
  12. FISH OIL [Concomitant]
     Dosage: UNK
  13. CALTRATE D                         /00944201/ [Concomitant]
     Dosage: 600-800, UNK
  14. VITAMIN D3 [Concomitant]
     Dosage: 1000 UNIT, UNK
  15. CITALOPRAM [Concomitant]
     Dosage: 10 MG, UNK

REACTIONS (4)
  - Lung infection [Unknown]
  - Vaginal infection [Unknown]
  - Oral infection [Unknown]
  - Pharyngitis [Unknown]
